FAERS Safety Report 6183005-2 (Version None)
Quarter: 2009Q2

REPORT INFORMATION
  Report Type: 
  Country: None (occurrence: None)
  Receive Date: 20090507
  Receipt Date: 20090429
  Transmission Date: 20091009
  Serious: Yes (Hospitalization)
  Sender: FDA-Public Use
  Company Number: FR-AVENTIS-200911674FR

PATIENT
  Age: 58 Year
  Sex: Female

DRUGS (5)
  1. TAXOTERE [Suspect]
     Indication: BREAST CANCER FEMALE
     Route: 042
     Dates: start: 20090326, end: 20090326
  2. FLUOROURACIL [Suspect]
     Indication: BREAST CANCER FEMALE
     Route: 042
     Dates: start: 20080101, end: 20090305
  3. EPIRUBICIN [Concomitant]
     Indication: BREAST CANCER FEMALE
     Route: 042
     Dates: start: 20080101, end: 20090305
  4. CYCLOPHOSPHAMIDE [Concomitant]
     Indication: BREAST CANCER FEMALE
     Route: 042
     Dates: start: 20080101, end: 20090305
  5. GRANOCYTE [Concomitant]
     Indication: DRUG USE FOR UNKNOWN INDICATION
     Dates: start: 20090326, end: 20090406

REACTIONS (3)
  - BRADYPHRENIA [None]
  - CEREBELLAR SYNDROME [None]
  - HEADACHE [None]
